FAERS Safety Report 9113212 (Version 2)
Quarter: 2013Q1

REPORT INFORMATION
  Report Type: Spontaneous
  Country: US (occurrence: US)
  Receive Date: 20130211
  Receipt Date: 20130305
  Transmission Date: 20140127
  Serious: Yes (Life-Threatening, Other)
  Sender: FDA-Public Use
  Company Number: US-ELI_LILLY_AND_COMPANY-US201302002205

PATIENT
  Sex: Female
  Weight: 109.75 kg

DRUGS (4)
  1. BYETTA [Suspect]
     Indication: TYPE 2 DIABETES MELLITUS
     Dosage: 5 UG, BID
     Route: 058
     Dates: start: 2007
  2. BYETTA [Suspect]
     Dosage: 10 UG, BID
     Route: 058
  3. GLIPIZIDE [Concomitant]
     Indication: TYPE 2 DIABETES MELLITUS
     Dosage: UNK
     Route: 048
  4. METFORMIN [Concomitant]
     Indication: TYPE 2 DIABETES MELLITUS
     Dosage: 500 MG, BID
     Route: 048

REACTIONS (17)
  - Carbon monoxide poisoning [Recovering/Resolving]
  - Loss of consciousness [Recovered/Resolved]
  - Walking disability [Recovering/Resolving]
  - Neurological symptom [Recovering/Resolving]
  - Incontinence [Recovering/Resolving]
  - Speech disorder [Recovering/Resolving]
  - Amnesia [Recovering/Resolving]
  - Balance disorder [Not Recovered/Not Resolved]
  - Road traffic accident [Recovering/Resolving]
  - Blood glucose increased [Unknown]
  - Glycosylated haemoglobin increased [Unknown]
  - Feeling abnormal [Recovering/Resolving]
  - Weight decreased [Not Recovered/Not Resolved]
  - Nausea [Recovering/Resolving]
  - Blood glucose decreased [Recovered/Resolved]
  - Drug ineffective [Unknown]
  - Underdose [Recovering/Resolving]
